FAERS Safety Report 6147063-3 (Version None)
Quarter: 2009Q2

REPORT INFORMATION
  Report Type: 
  Country: None (occurrence: None)
  Receive Date: 20090403
  Receipt Date: 20090327
  Transmission Date: 20091009
  Serious: Yes (Death)
  Sender: FDA-Public Use
  Company Number: 1-17934293

PATIENT
  Age: 83 Year
  Sex: Male

DRUGS (6)
  1. PREDNISOLONE [Suspect]
     Indication: PROSTATE CANCER
     Dosage: 5 MG TWICE DAILY, ORAL
     Route: 048
     Dates: start: 20090108, end: 20090306
  2. CP-751,871 [Suspect]
     Indication: PROSTATE CANCER
     Dosage: 1180MG EVERY 3 WEEKS, INTRAVENOUS
     Route: 042
     Dates: start: 20090109, end: 20090226
  3. DOCETAXEL [Suspect]
     Indication: PROSTATE CANCER
     Dosage: 123.53 MG EVERY 3 WEEKS, INTRAVENOUS
     Route: 042
     Dates: start: 20090109, end: 20090226
  4. ENALAPRIL [Concomitant]
  5. ELIGARD [Concomitant]
  6. DEXAMETHASONE SODIUM POSPHATE [Concomitant]

REACTIONS (8)
  - ABDOMINAL PAIN [None]
  - BLOOD POTASSIUM DECREASED [None]
  - CONSTIPATION [None]
  - HAEMOGLOBIN DECREASED [None]
  - HYPOTENSION [None]
  - PULMONARY EMBOLISM [None]
  - STOMATITIS [None]
  - WHITE BLOOD CELL COUNT DECREASED [None]
